FAERS Safety Report 6767509-7 (Version None)
Quarter: 2010Q2

REPORT INFORMATION
  Report Type: 
  Country: None (occurrence: None)
  Receive Date: 20100614
  Receipt Date: 20100601
  Transmission Date: 20101027
  Serious: Yes (Other)
  Sender: FDA-Public Use
  Company Number: ES-BRISTOL-MYERS SQUIBB COMPANY-15074040

PATIENT
  Age: 66 Year
  Sex: Male

DRUGS (4)
  1. ERBITUX [Suspect]
     Indication: COLORECTAL CANCER METASTATIC
     Dosage: 5MG/ML; 1100MG 28-APR-2009:29-SEP-2009, 154DAYS; LAST RECENT INF-12-APR-2010 LAST INF-11MAR2010
     Route: 042
     Dates: start: 20090428, end: 20100311
  2. LEUCOVORIN CALCIUM [Concomitant]
     Indication: COLORECTAL CANCER METASTATIC
     Route: 042
     Dates: start: 20090428, end: 20090929
  3. FLUOROURACIL [Concomitant]
     Indication: COLORECTAL CANCER METASTATIC
     Route: 042
     Dates: start: 20090428, end: 20090929
  4. OXALIPLATIN [Concomitant]
     Indication: COLORECTAL CANCER METASTATIC
     Dates: start: 20090428, end: 20090929

REACTIONS (2)
  - OCULAR HYPERAEMIA [None]
  - VISUAL ACUITY REDUCED [None]
